FAERS Safety Report 14766955 (Version 2)
Quarter: 2018Q2

REPORT INFORMATION
  Report Type: Spontaneous
  Country: GB (occurrence: GB)
  Receive Date: 20180417
  Receipt Date: 20180615
  Transmission Date: 20180711
  Serious: Yes (Hospitalization)
  Sender: FDA-Public Use
  Company Number: GB-TEVA-2018-GB-881594

PATIENT
  Age: 83 Year
  Sex: Male

DRUGS (17)
  1. LACTULOSE. [Concomitant]
     Active Substance: LACTULOSE
     Route: 065
  2. GLICLAZIDE [Concomitant]
     Active Substance: GLICLAZIDE
     Route: 065
  3. DARBEPOETIN ALFA [Concomitant]
     Active Substance: DARBEPOETIN ALFA
     Route: 065
  4. LINAGLIPTIN [Concomitant]
     Active Substance: LINAGLIPTIN
     Route: 065
  5. CO-CARELDOPA [Concomitant]
     Active Substance: CARBIDOPA\LEVODOPA
     Route: 065
  6. ATORVASTATIN [Concomitant]
     Active Substance: ATORVASTATIN
     Route: 065
  7. LAXIDO [Concomitant]
     Active Substance: POLYETHYLENE GLYCOL 3350\POTASSIUM CHLORIDE\SODIUM BICARBONATE\SODIUM CHLORIDE
     Route: 065
  8. RANITIDINE. [Concomitant]
     Active Substance: RANITIDINE
     Route: 065
  9. EPILIM [Concomitant]
     Active Substance: VALPROATE SODIUM
     Route: 065
  10. CASSIA [Concomitant]
     Route: 065
  11. FUROSEMIDE. [Concomitant]
     Active Substance: FUROSEMIDE
     Route: 065
  12. ADCAL-D3 [Concomitant]
     Active Substance: CALCIUM CARBONATE\CHOLECALCIFEROL
     Route: 065
  13. PARACETAMOL [Concomitant]
     Active Substance: ACETAMINOPHEN
     Route: 065
  14. SINEMET [Concomitant]
     Active Substance: CARBIDOPA\LEVODOPA
     Route: 065
  15. DUTASTERIDE. [Concomitant]
     Active Substance: DUTASTERIDE
     Route: 065
  16. CIPROFLOXACIN. [Suspect]
     Active Substance: CIPROFLOXACIN
     Indication: URINARY TRACT INFECTION
     Dosage: 1000 MILLIGRAM DAILY; PRESCRIBED FOR 10 DAYS
     Route: 048
  17. TAMSULOSIN [Concomitant]
     Active Substance: TAMSULOSIN
     Route: 065

REACTIONS (1)
  - Petit mal epilepsy [Recovering/Resolving]
